FAERS Safety Report 14261158 (Version 1)
Quarter: 2017Q4

REPORT INFORMATION
  Report Type: Spontaneous
  Country: US (occurrence: US)
  Receive Date: 20171207
  Receipt Date: 20171207
  Transmission Date: 20180321
  Serious: Yes (Other)
  Sender: FDA-Public Use
  Company Number: None

PATIENT
  Age: 55 Year
  Sex: Female
  Weight: 82.8 kg

DRUGS (1)
  1. BASAGLAR [Suspect]
     Active Substance: INSULIN GLARGINE
     Indication: BLOOD GLUCOSE INCREASED
     Dosage: ?          QUANTITY:15 ML;?
     Route: 058
     Dates: start: 20171201

REACTIONS (2)
  - Blood glucose increased [None]
  - Condition aggravated [None]

NARRATIVE: CASE EVENT DATE: 20171205
